FAERS Safety Report 9726911 (Version 7)
Quarter: 2019Q3

REPORT INFORMATION
  Report Type: Spontaneous
  Country: US (occurrence: US)
  Receive Date: 20131203
  Receipt Date: 20190726
  Transmission Date: 20191005
  Serious: Yes (Disabling, Other)
  Sender: FDA-Public Use
  Company Number: US-PFIZER INC-2013343087

PATIENT
  Age: 60 Year
  Sex: Female
  Weight: 82 kg

DRUGS (9)
  1. LYRICA [Suspect]
     Active Substance: PREGABALIN
     Indication: SCIATICA
     Dosage: 300 MG, DAILY
     Route: 048
     Dates: start: 2019, end: 2019
  2. CYMBALTA [Concomitant]
     Active Substance: DULOXETINE HYDROCHLORIDE
     Dosage: UNK
  3. REQUIP [Concomitant]
     Active Substance: ROPINIROLE HYDROCHLORIDE
     Dosage: UNK
  4. LYRICA [Suspect]
     Active Substance: PREGABALIN
     Indication: PAIN IN EXTREMITY
     Dosage: 50 MG, UNK
     Dates: start: 2019
  5. LYRICA [Suspect]
     Active Substance: PREGABALIN
     Indication: ARTHRALGIA
  6. LYRICA [Suspect]
     Active Substance: PREGABALIN
     Indication: DIABETIC NEUROPATHY
     Dosage: 300 MG, 1X/DAY
     Route: 048
  7. LYRICA [Suspect]
     Active Substance: PREGABALIN
     Indication: LIMB DISCOMFORT
     Dosage: 300 MG, 1X/DAY
     Route: 048
     Dates: start: 20190521, end: 2019
  8. PREMARIN [Concomitant]
     Active Substance: ESTROGENS, CONJUGATED
     Indication: FEELING COLD
  9. PREMARIN [Concomitant]
     Active Substance: ESTROGENS, CONJUGATED
     Indication: HOT FLUSH
     Dosage: 0.625 MG, 1X/DAY
     Route: 048

REACTIONS (14)
  - Pain [Unknown]
  - Insomnia [Unknown]
  - Joint dislocation [Unknown]
  - Tendon rupture [Recovered/Resolved]
  - Ligament rupture [Unknown]
  - Weight increased [Unknown]
  - Osteoarthritis [Unknown]
  - Intentional product use issue [Unknown]
  - Therapeutic response unexpected [Unknown]
  - Fatigue [Unknown]
  - Fall [Unknown]
  - Upper limb fracture [Unknown]
  - Visual impairment [Unknown]
  - Wrong technique in product usage process [Unknown]
